FAERS Safety Report 10007990 (Version 2)
Quarter: 2014Q1

REPORT INFORMATION
  Report Type: Report from Study
  Country: KR (occurrence: KR)
  Receive Date: 20140313
  Receipt Date: 20140321
  Transmission Date: 20141002
  Serious: Yes (Hospitalization)
  Sender: FDA-Public Use
  Company Number: PHHY2014KR028144

PATIENT
  Age: 64 Year
  Sex: Female

DRUGS (14)
  1. OXALIPLATIN [Suspect]
     Indication: GASTRIC CANCER
     Dosage: 133 MG, UNK
     Route: 042
     Dates: start: 20140122
  2. FOLINIC ACID [Suspect]
     Indication: GASTRIC CANCER
     Dosage: 624 MG, UNK
     Route: 042
     Dates: start: 20140122
  3. FLUOROURACIL [Suspect]
     Indication: GASTRIC CANCER
     Dosage: 624 MG, UNK
     Route: 040
  4. FLUOROURACIL [Suspect]
     Dosage: 3744 MG, UNK
     Route: 041
  5. DEXAMETHASONE [Concomitant]
     Indication: NAUSEA
     Route: 042
  6. DEXAMETHASONE [Concomitant]
     Route: 048
  7. ONSERAN [Concomitant]
     Indication: NAUSEA
     Route: 042
  8. ONSERAN [Concomitant]
     Route: 048
  9. ZANTAC [Concomitant]
     Indication: NAUSEA
     Dosage: 150 MG, UNK
     Route: 048
     Dates: start: 20140122
  10. AMARYL [Concomitant]
     Indication: DIABETES MELLITUS
     Dosage: 8 MG, UNK
     Route: 048
     Dates: start: 20140130
  11. AMARYL [Concomitant]
     Dosage: 1 MG, UNK
     Route: 048
  12. VAXAR [Concomitant]
     Indication: HYPERTENSION
     Dosage: 4 MG, UNK
     Route: 048
  13. VITAMIN K1 [Concomitant]
     Indication: THROMBOCYTOPENIA
     Dosage: 10 MG, UNK
     Route: 042
     Dates: start: 20140128, end: 20140130
  14. ATACAND [Concomitant]
     Indication: HYPERTENSION
     Route: 048

REACTIONS (4)
  - Sepsis [Recovered/Resolved]
  - Pyrexia [Recovering/Resolving]
  - Escherichia test positive [Recovering/Resolving]
  - Klebsiella test positive [Recovering/Resolving]
